FAERS Safety Report 5833503-3 (Version None)
Quarter: 2008Q3

REPORT INFORMATION
  Report Type: 
  Country: None (occurrence: None)
  Receive Date: 20080804
  Receipt Date: 20080804
  Transmission Date: 20090109
  Serious: Yes (Hospitalization, Other)
  Sender: FDA-Public Use
  Company Number: None

PATIENT
  Age: 13 Year
  Sex: Female
  Weight: 52.1637 kg

DRUGS (1)
  1. METOCLOPRAMIDE [Suspect]
     Indication: GASTROOESOPHAGEAL REFLUX DISEASE
     Dosage: 10MG UP TO 4 TIMES A DA PO
     Route: 048
     Dates: start: 20080729, end: 20080730

REACTIONS (12)
  - BACK PAIN [None]
  - BLOOD PRESSURE INCREASED [None]
  - CONVULSION [None]
  - DYSPNOEA [None]
  - HEART RATE INCREASED [None]
  - MOVEMENT DISORDER [None]
  - MUSCLE TWITCHING [None]
  - MUSCULAR WEAKNESS [None]
  - MUSCULOSKELETAL STIFFNESS [None]
  - NECK PAIN [None]
  - PAIN IN EXTREMITY [None]
  - TREMOR [None]
